FAERS Safety Report 17672880 (Version 1)
Quarter: 2020Q2

REPORT INFORMATION
  Report Type: Report from Study
  Country: BR (occurrence: BR)
  Receive Date: 20200416
  Receipt Date: 20200416
  Transmission Date: 20200713
  Serious: Yes (Other)
  Sender: FDA-Public Use
  Company Number: BR-BIOGEN-2016BI00226142

PATIENT
  Age: 39 Year
  Sex: Female

DRUGS (3)
  1. ENCLAVEHAIR [Concomitant]
     Indication: HAIR DISORDER
     Route: 065
  2. AMITRIPTILINE [Concomitant]
     Indication: INSOMNIA
     Dosage: SPORADICALLY
     Route: 065
  3. TECFIDERA [Suspect]
     Active Substance: DIMETHYL FUMARATE
     Indication: MULTIPLE SCLEROSIS
     Route: 048
     Dates: start: 20160205, end: 20200201

REACTIONS (8)
  - Hypersensitivity [Recovered/Resolved]
  - Myalgia [Recovered/Resolved]
  - Feeling hot [Recovered/Resolved]
  - Skin cancer [Recovered/Resolved]
  - Asthenia [Recovered/Resolved]
  - Human seminal plasma hypersensitivity [Recovered/Resolved]
  - Paraesthesia [Not Recovered/Not Resolved]
  - Rhinorrhoea [Recovered/Resolved]

NARRATIVE: CASE EVENT DATE: 20160205
